FAERS Safety Report 6216909-2 (Version None)
Quarter: 2009Q2

REPORT INFORMATION
  Report Type: 
  Country: None (occurrence: None)
  Receive Date: 20090604
  Receipt Date: 20090526
  Transmission Date: 20091009
  Serious: Yes (Hospitalization, Other)
  Sender: FDA-Public Use
  Company Number: DSU-2008-01985

PATIENT
  Age: 48 Year
  Sex: Female
  Weight: 79.3795 kg

DRUGS (12)
  1. BENICAR [Suspect]
     Indication: HYPERTENSION
     Dosage: 10 MG (10 MG, QD), PER ORAL; 40 MG, (40 MG, QD), PER ORAL
     Route: 048
     Dates: start: 20071213, end: 20080709
  2. BENICAR [Suspect]
     Indication: HYPERTENSION
     Dosage: 10 MG (10 MG, QD), PER ORAL; 40 MG, (40 MG, QD), PER ORAL
     Route: 048
     Dates: start: 20080709, end: 20080804
  3. SU-011, 248 (SUNITINIB MALEAT) (TABLET) [Suspect]
     Indication: BREAST CANCER
     Dosage: 37.5 MG (37.5 MG, QD), PER ORAL
     Route: 048
     Dates: start: 20080618, end: 20080729
  4. EFFEXOR (VENLAFAXINE HYDROCHLORIDE) (TABLET) (VENLAFAXINE HYDROCHLORID [Concomitant]
  5. FENTANYL (FENTANYL) (TABLET) (FENTANYL) [Concomitant]
  6. NORCO (PARACETAMOL, HYDROCODONE BITARTRATE) (TABLET) (PARACETAMOL, HYD [Concomitant]
  7. ZOFRAN (ONDANSETRON HYDROCHLORIDE) (TABLET) (ONDANSETRON HYDROCHLORIDE [Concomitant]
  8. COMPAZINE (PROCHLORPERAZINE EDISYLATE) (TABLET) (PROCHLORPRERAZINE EDI [Concomitant]
  9. VICODIN [Concomitant]
  10. LYRICA [Concomitant]
  11. HYDROCHLOROTHIAZIDE(HYDROCHLOROTIAZIDE) (TABLET) (HYDROCHLOROTHIAZIDE) [Concomitant]
  12. MULTIVITAMIN [Concomitant]

REACTIONS (7)
  - CHOLECYSTECTOMY [None]
  - CYSTITIS ESCHERICHIA [None]
  - DYSPNOEA [None]
  - HYPOTENSION [None]
  - LUNG INFILTRATION [None]
  - PLEURAL EFFUSION [None]
  - UROSEPSIS [None]
